FAERS Safety Report 26121734 (Version 1)
Quarter: 2025Q4

REPORT INFORMATION
  Report Type: Spontaneous
  Country: CN (occurrence: CN)
  Receive Date: 20251204
  Receipt Date: 20251204
  Transmission Date: 20260117
  Serious: Yes (Other)
  Sender: AMGEN
  Company Number: CN-AMGEN-CHNSP2025236311

PATIENT

DRUGS (2)
  1. XGEVA [Suspect]
     Active Substance: DENOSUMAB
     Indication: Non-small cell lung cancer
     Dosage: 120 MILLIGRAM, QMO (FOR 6 CYCLES)
     Route: 058
  2. XGEVA [Suspect]
     Active Substance: DENOSUMAB
     Indication: Metastases to bone

REACTIONS (5)
  - Non-small cell lung cancer metastatic [Unknown]
  - Pathological fracture [Unknown]
  - Spinal cord compression [Unknown]
  - Hypercalcaemia [Unknown]
  - Therapy partial responder [Unknown]
